FAERS Safety Report 4569590-2 (Version None)
Quarter: 2005Q1

REPORT INFORMATION
  Report Type: 
  Country: None (occurrence: None)
  Receive Date: 20050201
  Receipt Date: 20050119
  Transmission Date: 20050727
  Serious: Yes (Death, Hospitalization)
  Sender: FDA-Public Use
  Company Number: MEDI-0002753

PATIENT
  Age: 4 Month
  Sex: Male
  Weight: 4.165 kg

DRUGS (3)
  1. SYNAGIS [Suspect]
     Indication: ANTIVIRAL PROPHYLAXIS
     Dosage: 50 MG, 1 IN 30 D, INTRAMUSCULAR
     Route: 030
     Dates: start: 20041215, end: 20041215
  2. FUROSEMIDE [Concomitant]
  3. POTASSIUM (POTASSIUM) [Concomitant]

REACTIONS (7)
  - CARDIAC ARREST [None]
  - CARDIAC DISORDER [None]
  - CARDIAC FAILURE [None]
  - CONDITION AGGRAVATED [None]
  - MULTI-ORGAN FAILURE [None]
  - PNEUMONIA [None]
  - SHOCK [None]
